FAERS Safety Report 11808496 (Version 1)
Quarter: 2015Q4

REPORT INFORMATION
  Report Type: Spontaneous
  Country: US (occurrence: US)
  Receive Date: 20151207
  Receipt Date: 20151207
  Transmission Date: 20160305
  Serious: No
  Sender: FDA-Public Use
  Company Number: US-ROCHE-1578698

PATIENT
  Age: 10 Year
  Sex: Male
  Weight: 67 kg

DRUGS (3)
  1. ACTEMRA [Suspect]
     Active Substance: TOCILIZUMAB
     Indication: ACUTE FEBRILE NEUTROPHILIC DERMATOSIS
     Route: 042
     Dates: start: 201403
  2. LENALIDOMIDE [Suspect]
     Active Substance: LENALIDOMIDE
     Indication: ACUTE FEBRILE NEUTROPHILIC DERMATOSIS
     Route: 048
     Dates: start: 200808
  3. PREDNISOLONE. [Suspect]
     Active Substance: PREDNISOLONE
     Indication: ACUTE FEBRILE NEUTROPHILIC DERMATOSIS
     Dosage: VARIABLE
     Route: 048
     Dates: start: 2013

REACTIONS (3)
  - Neutropenia [Not Recovered/Not Resolved]
  - Leukopenia [Not Recovered/Not Resolved]
  - Lymphopenia [Not Recovered/Not Resolved]

NARRATIVE: CASE EVENT DATE: 20141223
